FAERS Safety Report 9165120 (Version 1)
Quarter: 2013Q1

REPORT INFORMATION
  Report Type: Spontaneous
  Country: US (occurrence: None)
  Receive Date: 20130313
  Receipt Date: 20130313
  Transmission Date: 20140127
  Serious: No
  Sender: FDA-Public Use
  Company Number: None

PATIENT
  Sex: Male
  Weight: 52.2 kg

DRUGS (1)
  1. XELODA [Suspect]
     Dosage: 500MG-3TABS PO IN AM,2 TABS PO IN PM .?150MG - 1 TAB PO IN AM; 1 TAB PO IN PM ON DAYS OF XRT

REACTIONS (5)
  - Diarrhoea [None]
  - Decreased appetite [None]
  - Fatigue [None]
  - Nausea [None]
  - Vomiting [None]
